FAERS Safety Report 25264547 (Version 1)
Quarter: 2025Q2

REPORT INFORMATION
  Report Type: Spontaneous
  Country: US (occurrence: US)
  Receive Date: 20250502
  Receipt Date: 20250502
  Transmission Date: 20250717
  Serious: Yes (Death, Other)
  Sender: AMGEN
  Company Number: US-AMGEN-USASP2025082103

PATIENT

DRUGS (1)
  1. BEVACIZUMAB [Suspect]
     Active Substance: BEVACIZUMAB
     Indication: Ovarian cancer
     Route: 065

REACTIONS (22)
  - Failure to thrive [Fatal]
  - Acute myocardial infarction [Fatal]
  - Gastrointestinal perforation [Fatal]
  - Anaemia [Fatal]
  - Multiple organ dysfunction syndrome [Fatal]
  - Respiratory failure [Fatal]
  - Circulatory collapse [Fatal]
  - COVID-19 [Fatal]
  - Ovarian cancer metastatic [Unknown]
  - Gastrointestinal fistula [Unknown]
  - Diarrhoea [Unknown]
  - Neutrophil count decreased [Unknown]
  - White blood cell count decreased [Unknown]
  - Fatigue [Unknown]
  - Nausea [Unknown]
  - Alopecia [Unknown]
  - Hyperglycaemia [Unknown]
  - Constipation [Unknown]
  - Rash [Unknown]
  - Small intestinal perforation [Unknown]
  - Small intestinal obstruction [Unknown]
  - Ascites [Unknown]
